FAERS Safety Report 16833711 (Version 8)
Quarter: 2021Q1

REPORT INFORMATION
  Report Type: Spontaneous
  Country: US (occurrence: US)
  Receive Date: 20190920
  Receipt Date: 20210225
  Transmission Date: 20210419
  Serious: No
  Sender: FDA-Public Use
  Company Number: US-PFIZER INC-2016595134

PATIENT
  Age: 6 Year
  Sex: Male
  Weight: 29 kg

DRUGS (9)
  1. GENOTROPIN [Suspect]
     Active Substance: SOMATROPIN
     Indication: SHORT STATURE
     Dosage: 1 MG, DAILY
     Route: 058
     Dates: start: 20161103
  2. GENOTROPIN [Suspect]
     Active Substance: SOMATROPIN
     Dosage: 1 MG, ONCE A DAY (ONCE AT NIGHT BEFORE GOING TO BED)
     Route: 058
     Dates: start: 20170913
  3. GENOTROPIN [Suspect]
     Active Substance: SOMATROPIN
     Dosage: 1.2 MG, ONCE A DAY (1.2 MG INJECTED NIGHTLY)
     Route: 058
     Dates: start: 20161224
  4. GENOTROPIN [Suspect]
     Active Substance: SOMATROPIN
     Dosage: UNK
     Dates: start: 20201112
  5. FLINTSTONE VITAMINS W/IRON [Concomitant]
     Dosage: UNK
  6. GENOTROPIN [Suspect]
     Active Substance: SOMATROPIN
     Dosage: 1 MG, ONCE A DAY (ONCE AT NIGHT BEFORE GOING TO BED)
     Route: 058
     Dates: start: 20161212
  7. GENOTROPIN [Suspect]
     Active Substance: SOMATROPIN
     Dosage: 0.8 MG, DAILY (NIGHTLY)
     Route: 058
     Dates: start: 20161224
  8. GENOTROPIN [Suspect]
     Active Substance: SOMATROPIN
     Dosage: 0.8 MG, DAILY
     Route: 058
     Dates: start: 20161116
  9. CETRIZEN [Concomitant]
     Indication: HYPERSENSITIVITY
     Dosage: UNK

REACTIONS (12)
  - Back pain [Not Recovered/Not Resolved]
  - Blood testosterone increased [Unknown]
  - Back disorder [Unknown]
  - Device leakage [Unknown]
  - Musculoskeletal discomfort [Unknown]
  - Device issue [Unknown]
  - Drug dose omission by device [Unknown]
  - Wrong technique in product usage process [Unknown]
  - Product storage error [Unknown]
  - Neck pain [Not Recovered/Not Resolved]
  - Joint noise [Unknown]
  - Injection site extravasation [Unknown]
